FAERS Safety Report 18524802 (Version 5)
Quarter: 2023Q4

REPORT INFORMATION
  Report Type: Spontaneous
  Country: US (occurrence: US)
  Receive Date: 20201119
  Receipt Date: 20231215
  Transmission Date: 20240109
  Serious: Yes (Other)
  Sender: FDA-Public Use
  Company Number: US-PFIZER INC-2020456815

PATIENT
  Age: 75 Year
  Sex: Female

DRUGS (2)
  1. IBRANCE [Suspect]
     Active Substance: PALBOCICLIB
     Indication: Breast cancer metastatic
     Dosage: TAKE 100 MG 1 TABLET DAILY FOR 21 DAYS EVERY 28 DAYS
     Route: 048
     Dates: start: 20201022
  2. IBRANCE [Suspect]
     Active Substance: PALBOCICLIB
     Dosage: 100 MG, CYCLIC [DAILY FOR 21 DAYS ON AND 7 DAYS OFF] (100 MG DAY 1-21 Q (EVERY) OF 28 DAYS)
     Route: 048
     Dates: start: 20210811

REACTIONS (2)
  - Dementia [Unknown]
  - Off label use [Unknown]
